FAERS Safety Report 8337100-X (Version None)
Quarter: 2012Q2

REPORT INFORMATION
  Report Type: 
  Country: None (occurrence: None)
  Receive Date: 20120501
  Receipt Date: 20120424
  Transmission Date: 20120825
  Serious: Yes (Death, Other)
  Sender: FDA-Public Use
  Company Number: GER/UKI/12/0024050

PATIENT
  Age: 61 Year
  Sex: Female

DRUGS (11)
  1. FUROSEMIDE [Concomitant]
  2. FLOXACILLIN SODIUM [Concomitant]
  3. PIPERACILLIN AND TAZOBACTAM [Concomitant]
  4. HUMULIN (INSULIN HUMAN ZINC SUSPENSION) [Concomitant]
  5. AMLODIPINE [Concomitant]
  6. METFORMIN HCL [Concomitant]
  7. CLOPIDEGREL [Suspect]
     Indication: ISCHAEMIC STROKE
     Dosage: 75 MG, 1 IN 1 D, ORAL
     Route: 048
     Dates: start: 20120314, end: 20120317
  8. SPIRONOLACTONE [Concomitant]
  9. ASPIRIN [Concomitant]
  10. METRONIDAZOLE [Concomitant]
  11. ISOSORBIDE MONONITRATE [Concomitant]

REACTIONS (6)
  - CELLULITIS [None]
  - SKIN EXFOLIATION [None]
  - TOXIC EPIDERMAL NECROLYSIS [None]
  - RASH [None]
  - RENAL IMPAIRMENT [None]
  - PNEUMONIA ASPIRATION [None]
